FAERS Safety Report 15066072 (Version 1)
Quarter: 2018Q2

REPORT INFORMATION
  Report Type: Report from Study
  Country: US (occurrence: US)
  Receive Date: 20180626
  Receipt Date: 20180626
  Transmission Date: 20180711
  Serious: No
  Sender: FDA-Public Use
  Company Number: PHEH2018US024640

PATIENT
  Sex: Female

DRUGS (1)
  1. COSENTYX [Suspect]
     Active Substance: SECUKINUMAB
     Indication: PSORIASIS
     Route: 065

REACTIONS (9)
  - Eye disorder [Unknown]
  - Tendon pain [Unknown]
  - Nasopharyngitis [Unknown]
  - Injection site bruising [Unknown]
  - Tendon rupture [Unknown]
  - Nasal disorder [Unknown]
  - Pharyngeal disorder [Unknown]
  - Fatigue [Unknown]
  - Injection site pain [Unknown]
